FAERS Safety Report 24434754 (Version 1)
Quarter: 2024Q4

REPORT INFORMATION
  Report Type: Report from Study
  Country: US (occurrence: US)
  Receive Date: 20241014
  Receipt Date: 20241014
  Transmission Date: 20250115
  Serious: Yes (Other)
  Sender: BIOGEN
  Company Number: US-BIOGEN-2024BI01286069

PATIENT
  Sex: Female

DRUGS (1)
  1. TECFIDERA [Suspect]
     Active Substance: DIMETHYL FUMARATE
     Indication: Multiple sclerosis
     Route: 050
     Dates: start: 20170207, end: 20240909

REACTIONS (11)
  - Epilepsy [Unknown]
  - Multiple sclerosis [Unknown]
  - Visual acuity reduced [Unknown]
  - Dry mouth [Unknown]
  - Impaired gastric emptying [Unknown]
  - Palpitations [Unknown]
  - Chest pain [Unknown]
  - Cardiac discomfort [Unknown]
  - Hypersensitivity [Unknown]
  - Urticaria [Unknown]
  - Abdominal pain upper [Unknown]
